FAERS Safety Report 7240569-5 (Version None)
Quarter: 2011Q1

REPORT INFORMATION
  Report Type: 
  Country: None (occurrence: None)
  Receive Date: 20110120
  Receipt Date: 20110120
  Transmission Date: 20110831
  Serious: Yes (Other)
  Sender: FDA-Public Use
  Company Number: None

PATIENT
  Age: 59 Year
  Sex: Male
  Weight: 90.3 kg

DRUGS (2)
  1. LAMOTRIGINE [Suspect]
     Dosage: 25 BID PO
     Route: 048
  2. CLOZAPINE [Suspect]
     Dosage: 12.5 BID PO
     Route: 048
     Dates: start: 20101001, end: 20101019

REACTIONS (1)
  - WHITE BLOOD CELL COUNT DECREASED [None]
